FAERS Safety Report 5481493-8 (Version None)
Quarter: 2007Q4

REPORT INFORMATION
  Report Type: 
  Country: None (occurrence: None)
  Receive Date: 20071010
  Receipt Date: 20071001
  Transmission Date: 20080405
  Serious: Yes (Hospitalization)
  Sender: FDA-Public Use
  Company Number: FR-ASTRAZENECA-2007CG01389

PATIENT
  Age: 19056 Day
  Sex: Female

DRUGS (7)
  1. NOLVADEX [Suspect]
     Indication: BREAST CANCER
     Route: 048
     Dates: start: 20030901
  2. ZELITREX [Concomitant]
  3. BACTRIM [Concomitant]
  4. SPECIAFOLDINE [Concomitant]
  5. COLCHICINE [Concomitant]
  6. RITUXAN [Concomitant]
     Indication: B-CELL LYMPHOMA
     Dates: start: 20070814
  7. FLUDARABINE PHOSPHATE [Concomitant]
     Indication: B-CELL LYMPHOMA
     Dates: start: 20070814

REACTIONS (2)
  - ARTHRALGIA [None]
  - OEDEMA [None]
